FAERS Safety Report 12156517 (Version 1)
Quarter: 2016Q1

REPORT INFORMATION
  Report Type: Spontaneous
  Country: ZA (occurrence: ZA)
  Receive Date: 20160307
  Receipt Date: 20160307
  Transmission Date: 20160526
  Serious: Yes (Hospitalization, Other)
  Sender: FDA-Public Use
  Company Number: ZA-MYLANLABS-2016M1009396

PATIENT

DRUGS (2)
  1. RIFAFOUR [Suspect]
     Active Substance: ETHAMBUTOL HYDROCHLORIDE\ISONIAZID\PYRAZINAMIDE\RIFAMYCIN
     Indication: HIV INFECTION
     Dosage: UNK
     Route: 065
     Dates: start: 201404
  2. TENOFOVIR DF/LAMIVUDINE/EFAVIRENZ TABLETS 300/300/600MG [Suspect]
     Active Substance: EFAVIRENZ\LAMIVUDINE\TENOFOVIR
     Dosage: UNK
     Route: 065
     Dates: start: 201303

REACTIONS (8)
  - Back pain [Unknown]
  - Decreased appetite [Unknown]
  - Dizziness [Unknown]
  - Anaemia [Unknown]
  - Weight decreased [Unknown]
  - Dyspnoea [Unknown]
  - Blood creatinine increased [Unknown]
  - Oesophageal candidiasis [Unknown]

NARRATIVE: CASE EVENT DATE: 20140619
